FAERS Safety Report 20844394 (Version 1)
Quarter: 2022Q2

REPORT INFORMATION
  Report Type: Report from Study
  Country: BR (occurrence: BR)
  Receive Date: 20220518
  Receipt Date: 20220518
  Transmission Date: 20220721
  Serious: Yes (Other)
  Sender: FDA-Public Use
  Company Number: BR-JNJFOC-20220523101

PATIENT
  Age: 53 Year
  Sex: Female

DRUGS (7)
  1. JANSSEN COVID-19 VACCINE [Suspect]
     Active Substance: AD26.COV2.S
     Indication: Immunisation
     Dosage: THIRD DOSE
     Route: 065
  2. SIMPONI [Suspect]
     Active Substance: GOLIMUMAB
     Indication: Rheumatoid arthritis
     Dosage: BEGINNING TREATMENT WITH THE PEN; NOWADAYS PATIENT USES THE SYRINGE, 50MG EVERY 4 WEEKS
     Route: 058
     Dates: start: 2017
  3. SIMPONI [Suspect]
     Active Substance: GOLIMUMAB
  4. JANSSEN COVID-19 VACCINE [Suspect]
     Active Substance: AD26.COV2.S
     Indication: Immunisation
     Dosage: FIRST DOSE
     Route: 065
  5. JANSSEN COVID-19 VACCINE [Suspect]
     Active Substance: AD26.COV2.S
     Dosage: SECOND DOSE
     Route: 065
  6. FLUOXETINE [Concomitant]
     Active Substance: FLUOXETINE HYDROCHLORIDE
     Indication: Chondropathy
     Route: 065
  7. METHOTREXATE [Concomitant]
     Active Substance: METHOTREXATE
     Indication: Product used for unknown indication
     Dosage: 10 TABLETS ORALLY A WEEK
     Route: 048

REACTIONS (11)
  - Rheumatoid arthritis [Unknown]
  - Suspected COVID-19 [Unknown]
  - Swelling [Unknown]
  - Anxiety [Unknown]
  - Abdominal distension [Unknown]
  - Feeling abnormal [Unknown]
  - Bone disorder [Unknown]
  - Hyperphagia [Unknown]
  - Off label use [Unknown]
  - Inappropriate schedule of product administration [Unknown]
  - Injection site pain [Recovered/Resolved]

NARRATIVE: CASE EVENT DATE: 20220301
